FAERS Safety Report 6406022-3 (Version None)
Quarter: 2009Q4

REPORT INFORMATION
  Report Type: 
  Country: None (occurrence: None)
  Receive Date: 20091016
  Receipt Date: 20091016
  Transmission Date: 20100525
  Serious: Yes (Other)
  Sender: FDA-Public Use
  Company Number: None

PATIENT
  Age: 28 Year
  Sex: Female
  Weight: 77.5651 kg

DRUGS (1)
  1. NEXT CHOICE 0.75MG NEXT CHOICE [Suspect]
     Indication: CONTRACEPTION
     Dosage: 1 PILL WITHIN 72 HOURS PO 2 PILL 12 HOURS LATER PO
     Route: 048
     Dates: start: 20090923, end: 20090923

REACTIONS (3)
  - ABDOMINAL PAIN [None]
  - BACK PAIN [None]
  - PREGNANCY ON ORAL CONTRACEPTIVE [None]
